FAERS Safety Report 5024462-4 (Version None)
Quarter: 2006Q2

REPORT INFORMATION
  Report Type: 
  Country: None (occurrence: None)
  Receive Date: 20060613
  Receipt Date: 20050830
  Transmission Date: 20061013
  Serious: Yes (Hospitalization, Other)
  Sender: FDA-Public Use
  Company Number: PHEH2005US09687

PATIENT
  Age: 67 Year
  Sex: Male

DRUGS (5)
  1. LAMISIL [Suspect]
     Indication: NAIL TINEA
     Dosage: UNK MG, UNK
     Route: 048
     Dates: start: 19980101, end: 19980101
  2. LAMISIL [Suspect]
     Dosage: 250 MG, QD
     Route: 048
     Dates: start: 20050729, end: 20050816
  3. SYNTHROID [Concomitant]
  4. HYZAAR [Concomitant]
  5. VITAMINS [Concomitant]

REACTIONS (23)
  - ALANINE AMINOTRANSFERASE INCREASED [None]
  - ANOREXIA [None]
  - ASPARTATE AMINOTRANSFERASE INCREASED [None]
  - ASTHENIA [None]
  - BLOOD ALKALINE PHOSPHATASE INCREASED [None]
  - COLECTOMY [None]
  - COLITIS ULCERATIVE [None]
  - COLON CANCER [None]
  - DECREASED APPETITE [None]
  - DEHYDRATION [None]
  - DIARRHOEA [None]
  - DISORIENTATION [None]
  - ELECTROLYTE IMBALANCE [None]
  - ENDOSCOPY [None]
  - HEPATIC ENZYME INCREASED [None]
  - INFLUENZA LIKE ILLNESS [None]
  - INTESTINAL FUNCTIONAL DISORDER [None]
  - LIVER DISORDER [None]
  - MALAISE [None]
  - POUCHITIS [None]
  - STASIS SYNDROME [None]
  - VOMITING [None]
  - WEIGHT DECREASED [None]
